FAERS Safety Report 16578279 (Version 1)
Quarter: 2020Q3

REPORT INFORMATION
  Report Type: Spontaneous
  Country: US (occurrence: US)
  Receive Date: 20190716
  Receipt Date: 20190716
  Transmission Date: 20201105
  Serious: Yes (Death, Hospitalization)
  Sender: FDA-Public Use
  Company Number: PHHY2019US163737

PATIENT
  Age: 32 Year
  Sex: Female

DRUGS (12)
  1. CLOFARABINE. [Suspect]
     Active Substance: CLOFARABINE
     Indication: T-CELL TYPE ACUTE LEUKAEMIA
     Route: 065
  2. VINCRISTINE [Suspect]
     Active Substance: VINCRISTINE
     Indication: T-CELL TYPE ACUTE LEUKAEMIA
     Route: 065
  3. CYTARABINE. [Suspect]
     Active Substance: CYTARABINE
     Indication: ACUTE MYELOID LEUKAEMIA
     Dosage: 3 G/M2, FOR 4 DOSES
     Route: 042
  4. CYTARABINE. [Suspect]
     Active Substance: CYTARABINE
     Dosage: 3 G/M2, THREE HOURS
     Route: 042
  5. ETOPOSIDE. [Suspect]
     Active Substance: ETOPOSIDE
     Indication: ACUTE MYELOID LEUKAEMIA
     Dosage: 150 MG/M2, ON DAYS 1, 3 AND 5
     Route: 065
  6. METHOTREXATE. [Suspect]
     Active Substance: METHOTREXATE
     Indication: T-CELL TYPE ACUTE LEUKAEMIA
     Dosage: 1 G/M2, UNK
     Route: 065
  7. MITOXANTRONE [Suspect]
     Active Substance: MITOXANTRONE HYDROCHLORIDE
     Indication: ACUTE MYELOID LEUKAEMIA
     Dosage: 60 MG/M2, ON DAY 2
     Route: 065
  8. ALECTINIB. [Suspect]
     Active Substance: ALECTINIB
     Indication: T-CELL TYPE ACUTE LEUKAEMIA
     Route: 065
  9. AZACITIDINE. [Suspect]
     Active Substance: AZACITIDINE
     Indication: T-CELL TYPE ACUTE LEUKAEMIA
     Route: 065
  10. METHYLPREDNISOLONE. [Suspect]
     Active Substance: METHYLPREDNISOLONE
     Indication: T-CELL TYPE ACUTE LEUKAEMIA
     Route: 065
  11. PREDNISONE. [Suspect]
     Active Substance: PREDNISONE
     Indication: T-CELL TYPE ACUTE LEUKAEMIA
     Route: 065
  12. VENETOCLAX. [Suspect]
     Active Substance: VENETOCLAX
     Indication: T-CELL TYPE ACUTE LEUKAEMIA
     Route: 065

REACTIONS (5)
  - Acute myeloid leukaemia [Fatal]
  - Recurrent cancer [Fatal]
  - Pyrexia [Unknown]
  - T-cell type acute leukaemia [Fatal]
  - Therapy non-responder [Fatal]
